FAERS Safety Report 8999719 (Version 1)
Quarter: 2013Q1

REPORT INFORMATION
  Report Type: Spontaneous
  Country: GR (occurrence: GR)
  Receive Date: 20130102
  Receipt Date: 20130102
  Transmission Date: 20140127
  Serious: Yes (Other)
  Sender: FDA-Public Use
  Company Number: GR-GLAXOSMITHKLINE-B0855424A

PATIENT
  Age: 78 Year
  Sex: Female
  Weight: 65 kg

DRUGS (4)
  1. RYTHMONORM [Suspect]
     Indication: EXTRASYSTOLES
     Dosage: 150MG TWICE PER DAY
     Route: 048
     Dates: start: 201202, end: 20120311
  2. LIPITOR [Suspect]
     Indication: DYSLIPIDAEMIA
     Dosage: 20MG PER DAY
     Route: 065
     Dates: start: 2008, end: 20120311
  3. CARVEDILOL [Suspect]
     Indication: CORONARY ARTERY DISEASE
     Dosage: .5MG TWICE PER DAY
     Route: 065
     Dates: start: 2010
  4. BONVIVA [Suspect]
     Indication: OSTEOPOROSIS
     Dosage: 150MG MONTHLY
     Route: 065
     Dates: start: 2010

REACTIONS (2)
  - Cholestasis [Recovering/Resolving]
  - Drug interaction [Unknown]
